FAERS Safety Report 4560788-6 (Version None)
Quarter: 2005Q1

REPORT INFORMATION
  Report Type: 
  Country: None (occurrence: None)
  Receive Date: 20050126
  Receipt Date: 20050113
  Transmission Date: 20050727
  Serious: Yes (Other)
  Sender: FDA-Public Use
  Company Number: CO-ABBOTT-05P-036-0288003-00

PATIENT
  Sex: Female
  Weight: 53 kg

DRUGS (8)
  1. HUMIRA [Suspect]
     Indication: RHEUMATOID ARTHRITIS
     Route: 058
     Dates: start: 20040407, end: 20041004
  2. PROPAFENONE HYDROCHLORIDE [Concomitant]
     Indication: SUPRAVENTRICULAR TACHYCARDIA
     Route: 048
  3. SALICYLIC ACID [Concomitant]
     Indication: SUPRAVENTRICULAR TACHYCARDIA
     Route: 048
  4. ESOMEPRAZOLE [Concomitant]
     Indication: GASTRIC DISORDER
     Route: 048
  5. CALCIUM GLUCONATE [Concomitant]
     Indication: OSTEOPOROSIS
     Route: 048
     Dates: start: 20000110, end: 20050110
  6. PREDNISONE [Concomitant]
     Indication: RHEUMATOID ARTHRITIS
     Route: 048
     Dates: start: 20000610
  7. DEFLAZACORT [Concomitant]
     Indication: RHEUMATOID ARTHRITIS
     Route: 048
     Dates: start: 20040407, end: 20040803
  8. CELECOXIB [Concomitant]
     Indication: RHEUMATOID ARTHRITIS
     Route: 048
     Dates: start: 20030711, end: 20041210

REACTIONS (7)
  - ANOREXIA [None]
  - DYSPEPSIA [None]
  - GASTRITIS [None]
  - GASTRITIS EROSIVE [None]
  - HAEMOLYTIC ANAEMIA [None]
  - NAUSEA [None]
  - PERICARDIAL EFFUSION [None]
